FAERS Safety Report 17173206 (Version 4)
Quarter: 2020Q1

REPORT INFORMATION
  Report Type: Spontaneous
  Country: US (occurrence: US)
  Receive Date: 20191218
  Receipt Date: 20200129
  Transmission Date: 20200409
  Serious: Yes (Hospitalization)
  Sender: FDA-Public Use
  Company Number: US-PFIZER INC-2019528695

PATIENT
  Age: 87 Year
  Sex: Female

DRUGS (1)
  1. PREPARATION H RAPID RELIEF [Suspect]
     Active Substance: GLYCERIN\LIDOCAINE
     Indication: HAEMORRHOIDS
     Dosage: UNK

REACTIONS (1)
  - Patella fracture [Unknown]

NARRATIVE: CASE EVENT DATE: 201807
